FAERS Safety Report 7113483-3 (Version None)
Quarter: 2010Q4

REPORT INFORMATION
  Report Type: 
  Country: None (occurrence: None)
  Receive Date: 20101119
  Receipt Date: 20101110
  Transmission Date: 20110411
  Serious: Yes (Hospitalization, Other)
  Sender: FDA-Public Use
  Company Number: US-ROCHE-432360

PATIENT
  Sex: Male
  Weight: 74.8 kg

DRUGS (2)
  1. ACCUTANE [Suspect]
     Route: 048
     Dates: start: 19870727, end: 19871129
  2. ACCUTANE [Suspect]
     Route: 048
     Dates: start: 19940802, end: 19940902

REACTIONS (13)
  - ADHESION [None]
  - ANAEMIA [None]
  - ASTHMA [None]
  - COLITIS [None]
  - COLITIS ULCERATIVE [None]
  - CROHN'S DISEASE [None]
  - DEHYDRATION [None]
  - DEPRESSION [None]
  - GENERALISED ANXIETY DISORDER [None]
  - HERNIA REPAIR [None]
  - INFLAMMATORY BOWEL DISEASE [None]
  - RENAL FAILURE ACUTE [None]
  - SMALL INTESTINAL OBSTRUCTION [None]
